FAERS Safety Report 4562955-4 (Version None)
Quarter: 2005Q1

REPORT INFORMATION
  Report Type: 
  Country: None (occurrence: None)
  Receive Date: 20050121
  Receipt Date: 20050113
  Transmission Date: 20050727
  Serious: Yes (Other)
  Sender: FDA-Public Use
  Company Number: 2005013911

PATIENT
  Age: 77 Year
  Sex: Female

DRUGS (5)
  1. LIPITOR [Suspect]
     Indication: BLOOD CHOLESTEROL INCREASED
     Dosage: 10 MG, ORAL
     Route: 048
     Dates: start: 20031121
  2. BENDROFLUMETHAZIDE             (BENDROFLUMETHIAZIDE) [Concomitant]
  3. CALCIUM               (CALCIUM) [Concomitant]
  4. CELECOXIB          (CELECOXIB) [Concomitant]
  5. APOREX           (DEXTROPROPOXYPHENE HYDROCHLORIDE, PARACETAMOL) [Concomitant]

REACTIONS (1)
  - AMNESIA [None]
